FAERS Safety Report 5856638-8 (Version None)
Quarter: 2008Q3

REPORT INFORMATION
  Report Type: 
  Country: None (occurrence: None)
  Receive Date: 20080822
  Receipt Date: 20080822
  Transmission Date: 20090109
  Serious: No
  Sender: FDA-Public Use
  Company Number: None

PATIENT
  Sex: Female
  Weight: 70.7611 kg

DRUGS (3)
  1. SINGULAIR [Suspect]
     Indication: EYE PAIN
     Dosage: 1 PILL 1X A DAY
     Dates: start: 20080710, end: 20080712
  2. SINGULAIR [Suspect]
     Indication: EYE PRURITUS
     Dosage: 1 PILL 1X A DAY
     Dates: start: 20080710, end: 20080712
  3. SINGULAIR [Suspect]
     Indication: MULTIPLE ALLERGIES
     Dosage: 1 PILL 1X A DAY
     Dates: start: 20080710, end: 20080712

REACTIONS (5)
  - ANXIETY [None]
  - DEPRESSION [None]
  - FATIGUE [None]
  - FEELING ABNORMAL [None]
  - IRRITABILITY [None]
